FAERS Safety Report 9527557 (Version 2)
Quarter: 2013Q4

REPORT INFORMATION
  Report Type: Spontaneous
  Country: US (occurrence: US)
  Receive Date: 20130917
  Receipt Date: 20131106
  Transmission Date: 20140711
  Serious: No
  Sender: FDA-Public Use
  Company Number: US-B.I. PHARMACEUTICALS,INC./RIDGEFIELD-2013-BI-27875BP

PATIENT
  Sex: Female
  Weight: 80.73 kg

DRUGS (8)
  1. SPIRIVA [Suspect]
     Indication: CHRONIC OBSTRUCTIVE PULMONARY DISEASE
     Dosage: 18 MCG
     Route: 055
     Dates: start: 201302
  2. SPIRIVA [Suspect]
     Indication: ASTHMA
  3. PRAVASTATIN [Concomitant]
     Dosage: 40 MG
     Route: 048
  4. OMEPRAZOLE [Concomitant]
     Dosage: 40 MG
     Route: 048
  5. METFORMIN [Concomitant]
     Indication: DIABETES MELLITUS
     Dosage: 500 MG
     Route: 048
  6. QVAR [Concomitant]
     Route: 055
  7. PROAIR [Concomitant]
     Route: 055
  8. ASPIRIN [Concomitant]
     Dosage: 325 MG
     Route: 048

REACTIONS (3)
  - Stress [Not Recovered/Not Resolved]
  - Depression [Not Recovered/Not Resolved]
  - Fatigue [Not Recovered/Not Resolved]
